FAERS Safety Report 9338442 (Version 5)
Quarter: 2014Q1

REPORT INFORMATION
  Report Type: Report from Study
  Country: BE (occurrence: BE)
  Receive Date: 20130610
  Receipt Date: 20140313
  Transmission Date: 20141002
  Serious: Yes (Hospitalization)
  Sender: FDA-Public Use
  Company Number: BE-ROCHE-1230619

PATIENT
  Age: 72 Year
  Sex: Female
  Weight: 81.7 kg

DRUGS (10)
  1. TRASTUZUMAB EMTANSINE [Suspect]
     Indication: BREAST CANCER
     Dosage: DATE OF LAST DOSE : 21/MAY/2013 294.12 MG
     Route: 042
     Dates: start: 20130426
  2. DAFALGAN FORTE [Concomitant]
     Route: 065
  3. INNOHEP [Concomitant]
     Route: 065
  4. LASIX [Concomitant]
     Route: 065
     Dates: end: 20130530
  5. MOTILIUM [Concomitant]
     Route: 065
  6. OXYNORM [Concomitant]
     Route: 065
  7. PRAVASTATIN [Concomitant]
     Route: 065
     Dates: end: 20130529
  8. STEOVIT [Concomitant]
     Dosage: TDD: 1000/800 MG
     Route: 065
  9. ZANTAC [Concomitant]
     Route: 065
     Dates: end: 20130530
  10. CONTRAMAL [Concomitant]
     Route: 065
     Dates: end: 20130531

REACTIONS (1)
  - Decreased appetite [Recovered/Resolved]
